FAERS Safety Report 6118452-8 (Version None)
Quarter: 2009Q1

REPORT INFORMATION
  Report Type: 
  Country: None (occurrence: None)
  Receive Date: 20090314
  Receipt Date: 20090213
  Transmission Date: 20090719
  Serious: No
  Sender: FDA-Public Use
  Company Number: US-ABBOTT-09P-163-0557859-00

PATIENT
  Sex: Female
  Weight: 89.892 kg

DRUGS (9)
  1. HUMIRA [Suspect]
     Indication: PSORIASIS
     Route: 058
     Dates: start: 20081101, end: 20081201
  2. HUMIRA [Suspect]
     Route: 058
     Dates: start: 20090101
  3. SERZONE [Concomitant]
     Indication: DEPRESSION
     Route: 048
  4. ESTRADIOL [Concomitant]
     Indication: HORMONE REPLACEMENT THERAPY
     Route: 048
  5. HYDROCODONE BITARTRATE AND ACETAMINOPHEN [Concomitant]
     Indication: PAIN
     Route: 048
  6. SOMA [Concomitant]
     Indication: FIBROMYALGIA
     Route: 048
  7. SOMA [Concomitant]
     Indication: MUSCLE SPASMS
  8. SOMA [Concomitant]
     Indication: PAIN
  9. VALIUM [Concomitant]
     Indication: DRUG USE FOR UNKNOWN INDICATION
     Route: 048

REACTIONS (2)
  - EAR PAIN [None]
  - MUSCULOSKELETAL PAIN [None]
